FAERS Safety Report 5262170-5 (Version None)
Quarter: 2007Q1

REPORT INFORMATION
  Report Type: 
  Country: None (occurrence: None)
  Receive Date: 20070311
  Receipt Date: 20070228
  Transmission Date: 20070707
  Serious: Yes (Hospitalization)
  Sender: FDA-Public Use
  Company Number: 2006UW07042

PATIENT
  Age: 18143 Day
  Sex: Male
  Weight: 122.7 kg

DRUGS (3)
  1. SEROQUEL [Suspect]
     Indication: BIPOLAR DISORDER
     Route: 048
     Dates: start: 20020605, end: 20060601
  2. RISPERDAL [Concomitant]
     Dates: start: 20010102, end: 20010125
  3. ZYPREXA [Concomitant]
     Dates: start: 20001115, end: 20020605

REACTIONS (4)
  - CELLULITIS [None]
  - DIABETES MELLITUS NON-INSULIN-DEPENDENT [None]
  - HYPERGLYCAEMIA [None]
  - ROTATOR CUFF SYNDROME [None]
